FAERS Safety Report 21426198 (Version 1)
Quarter: 2022Q4

REPORT INFORMATION
  Report Type: Spontaneous
  Country: BR (occurrence: BR)
  Receive Date: 20221008
  Receipt Date: 20221008
  Transmission Date: 20230113
  Serious: Yes (Other)
  Sender: FDA-Public Use
  Company Number: BR-TEVA BRAZIL-2022-BR-2079939

PATIENT
  Age: 50 Year
  Sex: Female

DRUGS (2)
  1. AJOVY [Suspect]
     Active Substance: FREMANEZUMAB-VFRM
     Indication: Migraine
     Dosage: 225 MG 1 TIME A MONTH
     Route: 065
     Dates: start: 20220826
  2. Alentus [Concomitant]
     Indication: Product used for unknown indication

REACTIONS (2)
  - Mumps [Unknown]
  - Parotitis [Unknown]

NARRATIVE: CASE EVENT DATE: 20220927
